FAERS Safety Report 18581987 (Version 2)
Quarter: 2020Q4

REPORT INFORMATION
  Report Type: Other
  Country: NL (occurrence: PT)
  Receive Date: 20201204
  Receipt Date: 20201215
  Transmission Date: 20210114
  Serious: Yes (Other)
  Sender: FDA-Public Use
  Company Number: NL-KOWA-20EU003920

PATIENT

DRUGS (5)
  1. ALIPZA [Suspect]
     Active Substance: PITAVASTATIN
     Indication: PRODUCT USED FOR UNKNOWN INDICATION
     Dosage: UNK UNK, UNK
     Route: 065
  2. LESCOL XL [Suspect]
     Active Substance: FLUVASTATIN SODIUM
     Indication: HYPERCHOLESTEROLAEMIA
     Dosage: 80 MG, UNKNOWN
     Route: 065
     Dates: start: 2000
  3. FLAGYL [METRONIDAZOLE BENZOATE] [Concomitant]
     Active Substance: METRONIDAZOLE BENZOATE
     Indication: PRODUCT USED FOR UNKNOWN INDICATION
     Dosage: UNK UNK, UNK
     Route: 065
     Dates: start: 2007
  4. LESCOL XL [Suspect]
     Active Substance: FLUVASTATIN SODIUM
     Dosage: 80 MG, UNKNOWN
     Route: 065
  5. CRESTOR [Suspect]
     Active Substance: ROSUVASTATIN CALCIUM
     Indication: PRODUCT USED FOR UNKNOWN INDICATION
     Dosage: UNK UNK, UNK
     Route: 065

REACTIONS (22)
  - Rhinitis [Unknown]
  - Fall [Unknown]
  - Functional gastrointestinal disorder [Unknown]
  - Depression [Not Recovered/Not Resolved]
  - Fatigue [Unknown]
  - Constipation [Unknown]
  - Diarrhoea [Unknown]
  - Dyspnoea [Unknown]
  - Dry eye [Unknown]
  - Skeletal injury [Unknown]
  - Anorectal disorder [Unknown]
  - Abdominal pain upper [Unknown]
  - Polyneuropathy [Unknown]
  - Hyperhidrosis [Unknown]
  - Aptyalism [Unknown]
  - Hypoaesthesia [Unknown]
  - Pelvic floor muscle weakness [Not Recovered/Not Resolved]
  - Gait disturbance [Unknown]
  - Sexual dysfunction [Not Recovered/Not Resolved]
  - Fear [Unknown]
  - Lacrimal disorder [Unknown]
  - Paraesthesia [Unknown]
